FAERS Safety Report 19001269 (Version 2)
Quarter: 2021Q1

REPORT INFORMATION
  Report Type: Spontaneous
  Country: CA (occurrence: CA)
  Receive Date: 20210312
  Receipt Date: 20210312
  Transmission Date: 20210420
  Serious: Yes (Other)
  Sender: FDA-Public Use
  Company Number: CA-PFIZER INC-2021257387

PATIENT
  Age: 49 Year
  Sex: Female

DRUGS (4)
  1. CABERGOLINE. [Suspect]
     Active Substance: CABERGOLINE
     Dosage: UNK
  2. LANREOTIDE [Suspect]
     Active Substance: LANREOTIDE
     Dosage: UNK
  3. SOMAVERT [Suspect]
     Active Substance: PEGVISOMANT
     Indication: ACROMEGALY
     Dosage: 10 MG, 1X/DAY
     Route: 058
  4. OCTREOTIDE. [Suspect]
     Active Substance: OCTREOTIDE
     Dosage: UNK

REACTIONS (7)
  - Drug hypersensitivity [Unknown]
  - Goitre [Unknown]
  - Osteoarthritis [Unknown]
  - Drug intolerance [Unknown]
  - Acromegaly [Unknown]
  - Drug ineffective [Unknown]
  - Iron deficiency anaemia [Unknown]
